FAERS Safety Report 12102404 (Version 1)
Quarter: 2016Q1

REPORT INFORMATION
  Report Type: Spontaneous
  Country: US (occurrence: US)
  Receive Date: 20160222
  Receipt Date: 20160222
  Transmission Date: 20160526
  Serious: Yes (Other)
  Sender: FDA-Public Use
  Company Number: US-JAZZ-JPI-P-033220

PATIENT
  Age: 41 Year
  Sex: Female

DRUGS (6)
  1. XYREM [Suspect]
     Active Substance: SODIUM OXYBATE
     Dosage: 4.25 G, BID
     Route: 048
     Dates: start: 201506
  2. XYREM [Suspect]
     Active Substance: SODIUM OXYBATE
     Dosage: 4.5 G, BID
     Route: 048
     Dates: start: 20130516
  3. ALLERGY [Suspect]
     Active Substance: UNSPECIFIED INGREDIENT
     Indication: HYPERSENSITIVITY
     Dosage: SINGLE
     Route: 051
  4. XYREM [Suspect]
     Active Substance: SODIUM OXYBATE
     Dosage: DOSE ADJUSTMENTS
     Route: 048
  5. METHYLPHENIDATE. [Suspect]
     Active Substance: METHYLPHENIDATE
     Indication: PRODUCT USED FOR UNKNOWN INDICATION
  6. XYREM [Suspect]
     Active Substance: SODIUM OXYBATE
     Indication: NARCOLEPSY
     Dosage: 2.25 G, BID
     Route: 048
     Dates: start: 20121120

REACTIONS (13)
  - Pre-existing condition improved [Unknown]
  - Malaise [Unknown]
  - Raynaud^s phenomenon [Unknown]
  - Arthralgia [Unknown]
  - Nasopharyngitis [Unknown]
  - Blood cholesterol increased [Unknown]
  - Weight decreased [Unknown]
  - Therapeutic response unexpected [Unknown]
  - Blood pressure increased [Unknown]
  - Systemic lupus erythematosus [Unknown]
  - Pruritus [Unknown]
  - Alopecia [Unknown]
  - Pain in extremity [Unknown]

NARRATIVE: CASE EVENT DATE: 201211
